FAERS Safety Report 14881795 (Version 2)
Quarter: 2018Q2

REPORT INFORMATION
  Report Type: Spontaneous
  Country: CA (occurrence: CA)
  Receive Date: 20180511
  Receipt Date: 20180516
  Transmission Date: 20180711
  Serious: Yes (Other)
  Sender: FDA-Public Use
  Company Number: CA-PFIZER INC-2018191889

PATIENT
  Age: 53 Year
  Sex: Female

DRUGS (7)
  1. METHOTREXATE SODIUM. [Suspect]
     Active Substance: METHOTREXATE SODIUM
     Dosage: UNK UNK, WEEKLY (TUESDAY) SHOT
     Dates: start: 201601
  2. PREDNISONE. [Concomitant]
     Active Substance: PREDNISONE
     Dosage: 50 MG, CYCLIC; 50MG FOR 1 WEEK THEN TAPER WEEKLY BY 5MG UNTIL FINISHED
     Route: 048
     Dates: start: 201602, end: 201605
  3. FOLIC ACID. [Concomitant]
     Active Substance: FOLIC ACID
     Dosage: 5 MG, WEEKLY (2 DAYS AFTER METHOTREXATE INJECTION)
     Route: 048
  4. ADVAIR HFA [Concomitant]
     Active Substance: FLUTICASONE PROPIONATE\SALMETEROL XINAFOATE
     Dosage: UNK UNK, AS NEEDED
     Route: 055
  5. TECTA [Concomitant]
     Active Substance: PANTOPRAZOLE MAGNESIUM
     Dosage: 40 MG, 2X/DAY
     Route: 048
  6. VENTOLIN [Concomitant]
     Active Substance: ALBUTEROL SULFATE
     Dosage: UNK UNK, AS NEEDED
     Route: 055
  7. IMURAN [Concomitant]
     Active Substance: AZATHIOPRINE
     Dosage: UNK
     Route: 048
     Dates: start: 201511, end: 201601

REACTIONS (10)
  - Migraine [Unknown]
  - Crohn^s disease [Unknown]
  - Asthma [Unknown]
  - Malaise [Unknown]
  - Condition aggravated [Unknown]
  - Arthralgia [Unknown]
  - Cardiac valve disease [Unknown]
  - Aphthous ulcer [Unknown]
  - Breast abscess [Not Recovered/Not Resolved]
  - Gastrooesophageal reflux disease [Unknown]
